FAERS Safety Report 7209435-5 (Version None)
Quarter: 2011Q1

REPORT INFORMATION
  Report Type: 
  Country: None (occurrence: None)
  Receive Date: 20110104
  Receipt Date: 20101130
  Transmission Date: 20110831
  Serious: Yes (Hospitalization)
  Sender: FDA-Public Use
  Company Number: US-BAYER-201025525NA

PATIENT
  Sex: Female
  Weight: 99.773 kg

DRUGS (7)
  1. HYDROCODONE [Concomitant]
     Indication: PAIN
     Dosage: UNK
     Dates: start: 20060101, end: 20100101
  2. YASMIN [Suspect]
     Indication: PREMENSTRUAL SYNDROME
  3. NORCO [Concomitant]
     Indication: PAIN
     Dosage: UNK
     Dates: start: 20100101, end: 20100501
  4. ADVIL [Concomitant]
     Dosage: UNK UNK, PRN
     Dates: start: 20000101
  5. YASMIN [Suspect]
     Indication: MENSTRUAL CYCLE MANAGEMENT
     Dosage: UNK
     Route: 048
     Dates: start: 20060228, end: 20060401
  6. MOTRIN [Concomitant]
     Indication: PAIN
     Dosage: 800 MG, UNK
  7. PERCOCET [Concomitant]
     Indication: PAIN

REACTIONS (2)
  - DEEP VEIN THROMBOSIS [None]
  - BACK PAIN [None]
